FAERS Safety Report 9095152 (Version 1)
Quarter: 2013Q1

REPORT INFORMATION
  Report Type: Spontaneous
  Country: US (occurrence: None)
  Receive Date: 20130123
  Receipt Date: 20130123
  Transmission Date: 20140127
  Serious: Yes (Hospitalization, Other)
  Sender: FDA-Public Use
  Company Number: ADR-2012-01877

PATIENT
  Age: 14 Year
  Sex: Female

DRUGS (1)
  1. LIORESAL INTRATHECAL (BACLOFEN INJECTION) 2000MCG/ML [Suspect]
     Indication: MUSCLE SPASTICITY
     Dosage: 609.4 MCG/DAY

REACTIONS (5)
  - Muscle spasticity [None]
  - Tachycardia [None]
  - Hyperhidrosis [None]
  - Flushing [None]
  - Medical device complication [None]
